FAERS Safety Report 7091727-4 (Version None)
Quarter: 2010Q4

REPORT INFORMATION
  Report Type: 
  Country: None (occurrence: None)
  Receive Date: 20101109
  Receipt Date: 20090914
  Transmission Date: 20110411
  Serious: No
  Sender: FDA-Public Use
  Company Number: US-KINGPHARMUSA00001-K200901125

PATIENT
  Age: 10 Month
  Sex: Female
  Weight: 8.163 kg

DRUGS (1)
  1. FLECTOR [Suspect]
     Dosage: CORNER OF ONE PATCH, SINGLE
     Route: 048
     Dates: start: 20090914, end: 20090914

REACTIONS (3)
  - ACCIDENTAL EXPOSURE [None]
  - DIARRHOEA [None]
  - VOMITING [None]
